FAERS Safety Report 16547733 (Version 1)
Quarter: 2019Q3

REPORT INFORMATION
  Report Type: Spontaneous
  Country: IN (occurrence: IN)
  Receive Date: 20190709
  Receipt Date: 20190709
  Transmission Date: 20191004
  Serious: Yes (Other)
  Sender: FDA-Public Use
  Company Number: PHHY2019IN154918

PATIENT
  Age: 14 Year
  Sex: Female
  Weight: 37.4 kg

DRUGS (8)
  1. METOCLOPRAMIDE. [Concomitant]
     Active Substance: METOCLOPRAMIDE
     Indication: VOMITING
     Dosage: UNK
     Route: 065
     Dates: start: 20190118
  2. DELAMANID [Suspect]
     Active Substance: DELAMANID
     Indication: PULMONARY TUBERCULOSIS
     Dosage: 100 MG, BID
     Route: 065
     Dates: start: 20190118
  3. MOXIFLOXACIN. [Suspect]
     Active Substance: MOXIFLOXACIN
     Indication: PULMONARY TUBERCULOSIS
     Dosage: 600 MG, QD
     Route: 065
     Dates: start: 20190118
  4. ONDANSETRON [Concomitant]
     Active Substance: ONDANSETRON
     Indication: VOMITING
     Dosage: 8 MG, UNK
     Route: 065
     Dates: start: 20190118
  5. LINEZOLID. [Suspect]
     Active Substance: LINEZOLID
     Indication: PULMONARY TUBERCULOSIS
     Dosage: 600 MG, QD
     Route: 065
     Dates: start: 20190118, end: 20190514
  6. BEDAQUILINE [Suspect]
     Active Substance: BEDAQUILINE
     Indication: PULMONARY TUBERCULOSIS
     Dosage: 200 MG, TIW
     Route: 065
     Dates: start: 20190118
  7. OMEPRAZOLE. [Concomitant]
     Active Substance: OMEPRAZOLE
     Indication: GASTRITIS
     Dosage: UNK
     Route: 065
     Dates: start: 20190118
  8. CLOFAZIMINE [Suspect]
     Active Substance: CLOFAZIMINE
     Indication: PULMONARY TUBERCULOSIS
     Dosage: 150 MG, QD
     Route: 065
     Dates: start: 20190118

REACTIONS (5)
  - Paraesthesia [Unknown]
  - Neuropathy peripheral [Unknown]
  - Burning sensation [Unknown]
  - Pain in extremity [Unknown]
  - Haemoglobin decreased [Unknown]

NARRATIVE: CASE EVENT DATE: 20190514
